FAERS Safety Report 15102855 (Version 3)
Quarter: 2018Q3

REPORT INFORMATION
  Report Type: Spontaneous
  Country: US (occurrence: US)
  Receive Date: 20180703
  Receipt Date: 20180920
  Transmission Date: 20181010
  Serious: No
  Sender: FDA-Public Use
  Company Number: US-SA-2018SA173468

PATIENT
  Sex: Female

DRUGS (4)
  1. OMEGA 3,6+9 [Concomitant]
  2. DUPIXENT [Suspect]
     Active Substance: DUPILUMAB
     Indication: DERMATITIS ATOPIC
     Dosage: 300 MG, QOW
     Route: 058
     Dates: start: 20180420
  3. DHEA [Concomitant]
     Active Substance: PRASTERONE
  4. LOTEMAX [Concomitant]
     Active Substance: LOTEPREDNOL ETABONATE

REACTIONS (3)
  - Eye disorder [Not Recovered/Not Resolved]
  - Fatigue [Unknown]
  - Dermatitis [Not Recovered/Not Resolved]

NARRATIVE: CASE EVENT DATE: 2018
